FAERS Safety Report 25721938 (Version 1)
Quarter: 2025Q3

REPORT INFORMATION
  Report Type: Spontaneous
  Country: EU (occurrence: EU)
  Receive Date: 20250825
  Receipt Date: 20250825
  Transmission Date: 20251020
  Serious: Yes (Hospitalization, Other)
  Sender: INSUD PHARMA
  Company Number: None

PATIENT
  Age: 38 Year
  Sex: Female
  Weight: 95 kg

DRUGS (2)
  1. DROSPIRENONE [Suspect]
     Active Substance: DROSPIRENONE
     Indication: Adenomyosis
     Dosage: 4 MILLIGRAM, QD
     Route: 048
     Dates: start: 20240613, end: 202504
  2. DROSPIRENONE [Suspect]
     Active Substance: DROSPIRENONE
     Dosage: 4 MILLIGRAM, QD
     Route: 048
     Dates: start: 202505, end: 20250708

REACTIONS (1)
  - Hepatic cytolysis [Recovering/Resolving]

NARRATIVE: CASE EVENT DATE: 20250403
